FAERS Safety Report 23448280 (Version 2)
Quarter: 2024Q2

REPORT INFORMATION
  Report Type: Spontaneous
  Country: CH (occurrence: CH)
  Receive Date: 20240127
  Receipt Date: 20240405
  Transmission Date: 20240716
  Serious: Yes (Hospitalization, Other)
  Sender: FDA-Public Use
  Company Number: CH-JNJFOC-20240164668

PATIENT
  Age: 73 Year
  Sex: Female

DRUGS (2)
  1. IMBRUVICA [Suspect]
     Active Substance: IBRUTINIB
     Indication: Diffuse large B-cell lymphoma
     Route: 048
     Dates: start: 202108, end: 20230907
  2. REVLIMID [Suspect]
     Active Substance: LENALIDOMIDE
     Indication: Diffuse large B-cell lymphoma
     Route: 065
     Dates: start: 202108, end: 20230907

REACTIONS (14)
  - Deep vein thrombosis [Unknown]
  - Colitis [Unknown]
  - Off label use [Unknown]
  - Pneumonia [Unknown]
  - Osteoporosis [Unknown]
  - Diarrhoea [Unknown]
  - Femoral neck fracture [Unknown]
  - Vitamin D deficiency [Unknown]
  - Cholecystitis acute [Unknown]
  - COVID-19 [Unknown]
  - Infection [Unknown]
  - Pancytopenia [Unknown]
  - Staphylococcal bacteraemia [Unknown]
  - Cachexia [Unknown]

NARRATIVE: CASE EVENT DATE: 20220701
